FAERS Safety Report 12997795 (Version 1)
Quarter: 2016Q4

REPORT INFORMATION
  Report Type: Report from Study
  Country: RS (occurrence: RS)
  Receive Date: 20161205
  Receipt Date: 20161205
  Transmission Date: 20170207
  Serious: Yes (Other)
  Sender: FDA-Public Use
  Company Number: RS-ASTELLAS-2016US040671

PATIENT
  Age: 39 Year
  Sex: Male
  Weight: 104 kg

DRUGS (4)
  1. CELLCEPT [Concomitant]
     Active Substance: MYCOPHENOLATE MOFETIL\MYCOPHENOLATE MOFETIL HYDROCHLORIDE
     Indication: ROUTINE HEALTH MAINTENANCE
     Route: 065
     Dates: start: 20140930
  2. PRONISON [Concomitant]
     Active Substance: PREDNISONE
     Indication: ROUTINE HEALTH MAINTENANCE
     Route: 065
     Dates: start: 20141006
  3. TACROLIMUS. [Suspect]
     Active Substance: TACROLIMUS
     Route: 048
     Dates: start: 20151208
  4. TACROLIMUS. [Suspect]
     Active Substance: TACROLIMUS
     Indication: RENAL TRANSPLANT
     Route: 048
     Dates: start: 20151010

REACTIONS (1)
  - Hypertriglyceridaemia [Not Recovered/Not Resolved]

NARRATIVE: CASE EVENT DATE: 20151110
